FAERS Safety Report 21202136 (Version 2)
Quarter: 2022Q3

REPORT INFORMATION
  Report Type: Spontaneous
  Country: US (occurrence: US)
  Receive Date: 20220811
  Receipt Date: 20220826
  Transmission Date: 20221026
  Serious: Yes (Death, Hospitalization)
  Sender: FDA-Public Use
  Company Number: US-TEVA-2022-US-2062794

PATIENT
  Age: 45 Year
  Sex: Male

DRUGS (4)
  1. VANCOMYCIN [Suspect]
     Active Substance: VANCOMYCIN
     Indication: Cellulitis staphylococcal
     Route: 065
  2. ASPIRIN [Suspect]
     Active Substance: ASPIRIN
     Indication: Arteriovenous fistula thrombosis
     Dosage: 81 MILLIGRAM DAILY;
     Route: 065
  3. HEPARIN [Suspect]
     Active Substance: HEPARIN SODIUM
     Indication: Arteriovenous fistula thrombosis
     Dosage: THE PATIENT RECEIVED 5000UNIT OF IV BOLUS OF HEPARIN
     Route: 040
  4. PIPERACILLIN SODIUM\TAZOBACTAM SODIUM [Suspect]
     Active Substance: PIPERACILLIN SODIUM\TAZOBACTAM SODIUM
     Indication: Cellulitis staphylococcal
     Route: 065

REACTIONS (1)
  - Drug ineffective [Fatal]
